FAERS Safety Report 6859925-X (Version None)
Quarter: 2010Q3

REPORT INFORMATION
  Report Type: 
  Country: None (occurrence: None)
  Receive Date: 20100720
  Receipt Date: 20100706
  Transmission Date: 20110219
  Serious: Yes (Other)
  Sender: FDA-Public Use
  Company Number: PHHY2008CA29596

PATIENT
  Sex: Female

DRUGS (4)
  1. ACLASTA [Suspect]
     Indication: OSTEOPOROSIS
     Dosage: UNK
     Dates: start: 20081120
  2. ATROVENT [Concomitant]
     Dosage: BID
     Route: 042
  3. ADVAIR DISKUS 100/50 [Concomitant]
     Dosage: BID
  4. RABEPRAZOLE SODIUM [Concomitant]
     Dosage: UNK

REACTIONS (8)
  - ASTHENIA [None]
  - BLOOD CREATININE INCREASED [None]
  - BONE PAIN [None]
  - BURNING SENSATION [None]
  - NAUSEA [None]
  - PYREXIA [None]
  - TREMOR [None]
  - VOMITING [None]
